FAERS Safety Report 13541801 (Version 3)
Quarter: 2017Q4

REPORT INFORMATION
  Report Type: Report from Study
  Country: US (occurrence: US)
  Receive Date: 20170512
  Receipt Date: 20171122
  Transmission Date: 20180320
  Serious: Yes (Hospitalization)
  Sender: FDA-Public Use
  Company Number: US-009507513-1705USA004110

PATIENT
  Age: 65 Year
  Sex: Female

DRUGS (5)
  1. HYDROCODONE [Concomitant]
     Active Substance: HYDROCODONE
     Indication: ANALGESIC THERAPY
  2. METOPROLOL. [Concomitant]
     Active Substance: METOPROLOL
  3. WARFARIN [Concomitant]
     Active Substance: WARFARIN
  4. IRON (UNSPECIFIED) [Concomitant]
     Active Substance: IRON
  5. KEYTRUDA [Suspect]
     Active Substance: PEMBROLIZUMAB
     Indication: LUNG CARCINOMA CELL TYPE UNSPECIFIED STAGE IV
     Dosage: ONE EVERY 3 WEEKS, IV INFUSION
     Route: 042
     Dates: start: 201702, end: 2017

REACTIONS (4)
  - Pruritus [Not Recovered/Not Resolved]
  - Abdominal distension [Not Recovered/Not Resolved]
  - Blood test abnormal [Not Recovered/Not Resolved]
  - Therapy cessation [Unknown]

NARRATIVE: CASE EVENT DATE: 2017
